FAERS Safety Report 12390202 (Version 2)
Quarter: 2016Q3

REPORT INFORMATION
  Report Type: Report from Study
  Country: JP (occurrence: JP)
  Receive Date: 20160520
  Receipt Date: 20160707
  Transmission Date: 20161109
  Serious: Yes (Hospitalization, Other)
  Sender: FDA-Public Use
  Company Number: JP-UCBSA-2016017815

PATIENT
  Age: 70 Year
  Sex: Male
  Weight: 54 kg

DRUGS (2)
  1. LEVETIRACETAM. [Suspect]
     Active Substance: LEVETIRACETAM
     Indication: COMPLEX PARTIAL SEIZURES
     Dosage: 500 MG
     Route: 048
     Dates: end: 20160127
  2. VALERIN [Concomitant]
     Active Substance: VALPROATE SODIUM
     Indication: COMPLEX PARTIAL SEIZURES
     Dosage: 1200 MG DAILY
     Route: 048
     Dates: end: 20160127

REACTIONS (3)
  - Influenza [Recovering/Resolving]
  - Respiratory failure [Recovered/Resolved]
  - Pneumonia [Recovered/Resolved]

NARRATIVE: CASE EVENT DATE: 20160128
